FAERS Safety Report 19436843 (Version 1)
Quarter: 2021Q2

REPORT INFORMATION
  Report Type: Spontaneous
  Country: US (occurrence: US)
  Receive Date: 20210618
  Receipt Date: 20210618
  Transmission Date: 20210717
  Serious: Yes (Other)
  Sender: FDA-Public Use
  Company Number: US-CHIESI-2021CHF03037

PATIENT
  Age: 90 Year
  Sex: Male
  Weight: 64 kg

DRUGS (2)
  1. FERRIPROX [Suspect]
     Active Substance: DEFERIPRONE
     Indication: OFF LABEL USE
  2. FERRIPROX [Suspect]
     Active Substance: DEFERIPRONE
     Indication: MYELODYSPLASTIC SYNDROME
     Dosage: 10 MILLILITER, BID
     Route: 048
     Dates: start: 20210224

REACTIONS (2)
  - Off label use [Unknown]
  - Hospice care [Recovering/Resolving]

NARRATIVE: CASE EVENT DATE: 20210224
